FAERS Safety Report 20351890 (Version 1)
Quarter: 2022Q1

REPORT INFORMATION
  Report Type: Report from Study
  Country: US (occurrence: None)
  Receive Date: 20220119
  Receipt Date: 20220119
  Transmission Date: 20220423
  Serious: Yes (Hospitalization)
  Sender: FDA-Public Use
  Company Number: US-Eisai Medical Research-EC-2022-106848

PATIENT
  Age: 73 Year
  Sex: Female
  Weight: 103 kg

DRUGS (8)
  1. LENVIMA [Suspect]
     Active Substance: LENVATINIB
     Indication: Uterine cancer
     Route: 048
     Dates: start: 20210614
  2. AMLODIPINE BESYLATE [Concomitant]
     Active Substance: AMLODIPINE BESYLATE
  3. KEPPRA [Concomitant]
     Active Substance: LEVETIRACETAM
  4. TYLENOL [Concomitant]
     Active Substance: ACETAMINOPHEN
  5. LEVETIRACETAM [Concomitant]
     Active Substance: LEVETIRACETAM
  6. ONDANSETRON [Concomitant]
     Active Substance: ONDANSETRON
  7. LOSARTAN POTASSIUM [Concomitant]
     Active Substance: LOSARTAN POTASSIUM
  8. PREDNISONE [Concomitant]
     Active Substance: PREDNISONE

REACTIONS (1)
  - Gastrointestinal disorder [Recovering/Resolving]

NARRATIVE: CASE EVENT DATE: 20211101
